FAERS Safety Report 15448085 (Version 2)
Quarter: 2018Q4

REPORT INFORMATION
  Report Type: Report from Study
  Country: JP (occurrence: JP)
  Receive Date: 20180928
  Receipt Date: 20181101
  Transmission Date: 20190204
  Serious: Yes (Hospitalization, Other)
  Sender: FDA-Public Use
  Company Number: JP-009507513-1809JPN002441J

PATIENT
  Age: 76 Year
  Sex: Male
  Weight: 63 kg

DRUGS (3)
  1. ANPLAG [Concomitant]
     Active Substance: SARPOGRELATE
     Indication: SCLERODERMA
     Dosage: 100 MILLIGRAM, BID
     Route: 048
     Dates: start: 20041127
  2. KEYTRUDA [Suspect]
     Active Substance: PEMBROLIZUMAB
     Indication: BLADDER CANCER
     Dosage: 200 MG, Q3W
     Route: 041
     Dates: start: 20180130, end: 20180904
  3. PROCYLIN [Concomitant]
     Active Substance: BERAPROST SODIUM
     Indication: SCLERODERMA
     Dosage: 20 MICROGRAM, BID
     Route: 048
     Dates: start: 20130709

REACTIONS (2)
  - Interstitial lung disease [Recovered/Resolved]
  - Hepatic function abnormal [Not Recovered/Not Resolved]

NARRATIVE: CASE EVENT DATE: 20180904
